FAERS Safety Report 18988544 (Version 2)
Quarter: 2021Q1

REPORT INFORMATION
  Report Type: Spontaneous
  Country: US (occurrence: US)
  Receive Date: 20210309
  Receipt Date: 20210311
  Transmission Date: 20210420
  Serious: Yes (Other)
  Sender: FDA-Public Use
  Company Number: US-TEVA-2021-US-1888780

PATIENT
  Age: 57 Year
  Sex: Female

DRUGS (13)
  1. TIZANIDINE HCL ORAL TABLET 4 MG [Concomitant]
     Route: 048
  2. CLONAZEPAM ORAL TABLET 1 MG [Concomitant]
     Route: 048
  3. AMLODIPINE BESYLATE ORAL TABLET 5 MG [Concomitant]
     Route: 048
  4. AUSTEDO [Suspect]
     Active Substance: DEUTETRABENAZINE
     Indication: TARDIVE DYSKINESIA
     Dosage: 24 MILLIGRAM DAILY;
     Route: 048
  5. HYDROCODONE?ACETAMINOPHEN ORAL TABLET 7.5?325 MG [Concomitant]
     Route: 048
  6. LANTUS SOLOSTAR SUBCUTANEOS SOLUTION PEN?INJECTOR 100 UNIT/ML [Concomitant]
     Route: 058
  7. BUPROPION HCL ER (XL) ORAL TABLET EXTENDED RELEASE 24 HOUR 300 MG [Concomitant]
     Route: 048
  8. QUETIAPINE FUMARATE ORAL TABLET 100 MG [Concomitant]
     Route: 048
  9. TRAZODONE HCL ORAL TABLET 100 MG [Concomitant]
     Route: 048
  10. DULOXETINE HCL CAPSULE DELAYED RELEASE PARTICLES 60 MG [Concomitant]
  11. SIMVASTATIN ORAL TABLET 40 MG [Concomitant]
     Route: 048
  12. PROPRANOLOL HCL ORAL TABLET 10 MG [Concomitant]
     Route: 048
  13. OMEPRAZOLE ORAL CAPSULE DELAYED RELEASE 40 MG [Concomitant]
     Route: 048

REACTIONS (7)
  - Dizziness [Unknown]
  - Arthralgia [Unknown]
  - Somnolence [Unknown]
  - Insomnia [Unknown]
  - Confusional state [Unknown]
  - Balance disorder [Unknown]
  - Gait disturbance [Unknown]
